FAERS Safety Report 9157277 (Version 1)
Quarter: 2013Q1

REPORT INFORMATION
  Report Type: Spontaneous
  Country: US (occurrence: US)
  Receive Date: 20130312
  Receipt Date: 20130312
  Transmission Date: 20140127
  Serious: Yes (Other)
  Sender: FDA-Public Use
  Company Number: US-BRISTOL-MYERS SQUIBB COMPANY-17461450

PATIENT
  Age: 84 Year
  Sex: Male
  Weight: 47.16 kg

DRUGS (1)
  1. WARFARIN SODIUM [Suspect]
     Indication: ATRIAL FIBRILLATION

REACTIONS (2)
  - Atrial fibrillation [Unknown]
  - International normalised ratio fluctuation [Unknown]
